FAERS Safety Report 9678884 (Version 3)
Quarter: 2013Q4

REPORT INFORMATION
  Report Type: Report from Study
  Country: US (occurrence: US)
  Receive Date: 20131108
  Receipt Date: 20131210
  Transmission Date: 20140711
  Serious: Yes (Other)
  Sender: FDA-Public Use
  Company Number: US-ABBVIE-13P-163-1164871-00

PATIENT
  Age: 59 Year
  Sex: Female
  Weight: 72.64 kg

DRUGS (12)
  1. HUMIRA [Suspect]
     Indication: RHEUMATOID ARTHRITIS
     Dates: start: 2010, end: 201304
  2. ARAVA [Concomitant]
     Indication: RHEUMATOID ARTHRITIS
  3. PREDNISONE [Concomitant]
     Indication: RHEUMATOID ARTHRITIS
  4. MELOXICAM [Concomitant]
     Indication: RHEUMATOID ARTHRITIS
  5. CYMBALTA [Concomitant]
     Indication: DEPRESSION
  6. CONCERTA [Concomitant]
     Indication: DISTURBANCE IN ATTENTION
  7. OMEPRAZOLE [Concomitant]
     Indication: DYSPEPSIA
  8. SEROQUEL [Concomitant]
     Indication: INSOMNIA
  9. CYCLOBENZAPRINE [Concomitant]
     Indication: ANXIOLYTIC THERAPY
  10. MAGNESIUM [Concomitant]
     Indication: CONSTIPATION
  11. JUICE PLUS [Concomitant]
     Indication: SUPPLEMENTATION THERAPY
  12. RANITIDINE [Concomitant]
     Indication: GASTROOESOPHAGEAL REFLUX DISEASE

REACTIONS (15)
  - Skin ulcer [Recovered/Resolved]
  - Squamous cell carcinoma of skin [Recovered/Resolved]
  - Productive cough [Recovered/Resolved]
  - Haemoptysis [Recovered/Resolved]
  - Pulmonary mass [Recovered/Resolved]
  - Lung infection [Recovered/Resolved]
  - Pain [Recovered/Resolved]
  - Pain in extremity [Not Recovered/Not Resolved]
  - Arthralgia [Not Recovered/Not Resolved]
  - Heart rate increased [Not Recovered/Not Resolved]
  - Throat irritation [Not Recovered/Not Resolved]
  - Fall [Recovered/Resolved]
  - Ankle fracture [Not Recovered/Not Resolved]
  - Osteogenesis imperfecta [Not Recovered/Not Resolved]
  - Inflammatory marker increased [Unknown]
